FAERS Safety Report 7236292-3 (Version None)
Quarter: 2011Q1

REPORT INFORMATION
  Report Type: 
  Country: None (occurrence: None)
  Receive Date: 20110120
  Receipt Date: 20110107
  Transmission Date: 20110831
  Serious: Yes (Hospitalization, Other)
  Sender: FDA-Public Use
  Company Number: US-ELI_LILLY_AND_COMPANY-US201011005913

PATIENT
  Sex: Female

DRUGS (2)
  1. RANITIDINE [Concomitant]
  2. CYMBALTA [Suspect]
     Indication: DEPRESSION
     Dosage: 60 MG, DAILY (1/D)
     Dates: start: 20100922, end: 20101117

REACTIONS (10)
  - BRONCHITIS [None]
  - GASTRITIS [None]
  - HEADACHE [None]
  - VISION BLURRED [None]
  - HEPATOMEGALY [None]
  - HEPATIC ENZYME INCREASED [None]
  - ABDOMINAL PAIN [None]
  - HAEMATOCHEZIA [None]
  - HEPATIC STEATOSIS [None]
  - TINNITUS [None]
